FAERS Safety Report 9695940 (Version 1)
Quarter: 2013Q4

REPORT INFORMATION
  Report Type: Spontaneous
  Country: US (occurrence: US)
  Receive Date: 20131119
  Receipt Date: 20131119
  Transmission Date: 20140711
  Serious: Yes (Other)
  Sender: FDA-Public Use
  Company Number: US-BAYER-2013-138226

PATIENT
  Age: 28 Year
  Sex: Female

DRUGS (2)
  1. YASMIN [Suspect]
     Dosage: UNK
     Dates: start: 2003
  2. YASMIN [Suspect]

REACTIONS (12)
  - Pregnancy on oral contraceptive [None]
  - Drug ineffective [None]
  - Cholecystectomy [None]
  - Thrombosis [None]
  - Phlebitis [None]
  - Deep vein thrombosis [None]
  - Pain [None]
  - Burning sensation [None]
  - Paraesthesia [None]
  - Headache [None]
  - Conjunctivitis [None]
  - Premature ageing [None]
